FAERS Safety Report 19841374 (Version 3)
Quarter: 2022Q1

REPORT INFORMATION
  Report Type: Other
  Country: US (occurrence: None)
  Receive Date: 20210916
  Receipt Date: 20220310
  Transmission Date: 20220423
  Serious: Yes (Other)
  Sender: FDA-Public Use
  Company Number: US-ROCHE-2908355

PATIENT
  Age: 38 Year
  Sex: Female
  Weight: 99.880 kg

DRUGS (4)
  1. OCREVUS [Suspect]
     Active Substance: OCRELIZUMAB
     Indication: Multiple sclerosis
     Dosage: (PRESCRIBED AS 600 MG IV EVERY 6 MONTHS) DATE OF TREATMENT: 20/MAY/2020, 31/DEC/2020, 18/AUG/2021, 1
     Route: 042
  2. OCREVUS [Suspect]
     Active Substance: OCRELIZUMAB
     Indication: Relapsing-remitting multiple sclerosis
  3. BENADRYL [Suspect]
     Active Substance: DIPHENHYDRAMINE HYDROCHLORIDE
     Indication: Premedication
     Route: 042
  4. ADDERALL [Concomitant]
     Active Substance: AMPHETAMINE ASPARTATE\AMPHETAMINE SULFATE\DEXTROAMPHETAMINE SACCHARATE\DEXTROAMPHETAMINE SULFATE
     Dosage: UP TO THREE TIMES A DAY AS NEEDED- USUALLY ONLY TAKES IT 1-2 TIMES A DAY. ;ONGOING:?YES, AS REQUIRED
     Route: 048
     Dates: start: 202108

REACTIONS (8)
  - Multiple sclerosis relapse [Unknown]
  - Feeling abnormal [Unknown]
  - Pharyngeal swelling [Not Recovered/Not Resolved]
  - Fatigue [Recovered/Resolved]
  - Headache [Recovered/Resolved]
  - Chest discomfort [Recovered/Resolved]
  - Muscle tightness [Recovered/Resolved]
  - COVID-19 [Recovered/Resolved]

NARRATIVE: CASE EVENT DATE: 20210825
